FAERS Safety Report 19679162 (Version 1)
Quarter: 2021Q3

REPORT INFORMATION
  Report Type: Spontaneous
  Country: US (occurrence: US)
  Receive Date: 20210809
  Receipt Date: 20210809
  Transmission Date: 20211014
  Serious: Yes (Life-Threatening, Disabling, Other)
  Sender: FDA-Public Use
  Company Number: US-AMERICAN REGENT INC-2021002064

PATIENT
  Sex: Female

DRUGS (7)
  1. INJECTAFER [Suspect]
     Active Substance: FERRIC CARBOXYMALTOSE
     Dosage: UNK UNK, SINGLE
     Route: 042
     Dates: start: 20180605, end: 20180605
  2. INJECTAFER [Suspect]
     Active Substance: FERRIC CARBOXYMALTOSE
     Indication: IRON DEFICIENCY ANAEMIA
     Dosage: UNK UNK, SINGLE
     Route: 042
     Dates: start: 20161122, end: 20161122
  3. INJECTAFER [Suspect]
     Active Substance: FERRIC CARBOXYMALTOSE
     Dosage: UNK UNK, SINGLE
     Route: 042
     Dates: start: 20170131, end: 20170131
  4. INJECTAFER [Suspect]
     Active Substance: FERRIC CARBOXYMALTOSE
     Dosage: UNK UNK, SINGLE
     Route: 042
     Dates: start: 20180529, end: 20180529
  5. INJECTAFER [Suspect]
     Active Substance: FERRIC CARBOXYMALTOSE
     Dosage: UNK UNK, SINGLE
     Route: 042
     Dates: start: 2021, end: 2021
  6. INJECTAFER [Suspect]
     Active Substance: FERRIC CARBOXYMALTOSE
     Dosage: UNK UNK, SINGLE
     Route: 042
     Dates: start: 2021, end: 2021
  7. INJECTAFER [Suspect]
     Active Substance: FERRIC CARBOXYMALTOSE
     Dosage: UNK UNK, SINGLE
     Route: 042
     Dates: start: 20161129, end: 20161129

REACTIONS (9)
  - Product quality issue [Unknown]
  - Tooth disorder [Not Recovered/Not Resolved]
  - Hypophosphataemia [Not Recovered/Not Resolved]
  - Pain [Not Recovered/Not Resolved]
  - Headache [Recovered/Resolved]
  - Emotional distress [Not Recovered/Not Resolved]
  - Arthralgia [Not Recovered/Not Resolved]
  - Anhedonia [Not Recovered/Not Resolved]
  - Partner stress [Not Recovered/Not Resolved]

NARRATIVE: CASE EVENT DATE: 2016
